FAERS Safety Report 22256115 (Version 1)
Quarter: 2023Q2

REPORT INFORMATION
  Report Type: Spontaneous
  Country: CA (occurrence: CA)
  Receive Date: 20230426
  Receipt Date: 20230426
  Transmission Date: 20230722
  Serious: Yes (Death)
  Sender: FDA-Public Use
  Company Number: CA-GILEAD-2023-0625803

PATIENT
  Age: 55 Year
  Sex: Male

DRUGS (2)
  1. EPCLUSA [Suspect]
     Active Substance: SOFOSBUVIR\VELPATASVIR
     Indication: Product used for unknown indication
     Route: 065
  2. RIBAVIRIN [Concomitant]
     Active Substance: RIBAVIRIN
     Dosage: UNK

REACTIONS (1)
  - Chronic obstructive pulmonary disease [Fatal]
